FAERS Safety Report 7550892-2 (Version None)
Quarter: 2011Q2

REPORT INFORMATION
  Report Type: 
  Country: None (occurrence: None)
  Receive Date: 20110609
  Receipt Date: 20110525
  Transmission Date: 20111010
  Serious: Yes (Hospitalization)
  Sender: FDA-Public Use
  Company Number: US-2011-10153

PATIENT
  Age: 61 Year
  Sex: Male

DRUGS (4)
  1. CYCLOPHOSPHAMIDE [Concomitant]
  2. ETOPOSIDE [Concomitant]
  3. BUSULFAN [Suspect]
     Indication: STEM CELL TRANSPLANT
     Dosage: 0.8 MG/KG, 362 MG/KG
     Dates: start: 20110302, end: 20110302
  4. BUSULFAN [Suspect]
     Indication: STEM CELL TRANSPLANT
     Dosage: 0.8 MG/KG, 362 MG/KG
     Dates: start: 20110308, end: 20110311

REACTIONS (5)
  - ABDOMINAL PAIN [None]
  - RENAL FAILURE [None]
  - SEPTIC SHOCK [None]
  - CONFUSIONAL STATE [None]
  - NEPHROPATHY TOXIC [None]
